FAERS Safety Report 6735570-1 (Version None)
Quarter: 2010Q2

REPORT INFORMATION
  Report Type: 
  Country: None (occurrence: None)
  Receive Date: 20100521
  Receipt Date: 20100512
  Transmission Date: 20101027
  Serious: Yes (Other)
  Sender: FDA-Public Use
  Company Number: GB-JNJFOC-20100405547

PATIENT
  Age: 59 Year
  Sex: Male

DRUGS (5)
  1. REMICADE [Suspect]
     Indication: ANKYLOSING SPONDYLITIS
     Route: 042
  2. METHOTREXATE [Concomitant]
     Indication: ANKYLOSING SPONDYLITIS
  3. FOLIC ACID [Concomitant]
  4. LANSOPRAZOLE [Concomitant]
  5. RISEDRONATE SODIUM [Concomitant]

REACTIONS (1)
  - RENAL CELL CARCINOMA [None]
